FAERS Safety Report 5636340-8 (Version None)
Quarter: 2008Q1

REPORT INFORMATION
  Report Type: 
  Country: None (occurrence: None)
  Receive Date: 20080225
  Receipt Date: 20080129
  Transmission Date: 20080703
  Serious: Yes (Other)
  Sender: FDA-Public Use
  Company Number: PHBS2008DE01589

PATIENT
  Age: 32 Year
  Sex: Male

DRUGS (1)
  1. METHYLPHENIDATE HCL [Suspect]
     Indication: ATTENTION DEFICIT/HYPERACTIVITY DISORDER
     Dosage: UP TO 65 MG/DAY

REACTIONS (8)
  - BRAIN ABSCESS [None]
  - BRAIN MALFORMATION [None]
  - CONDITION AGGRAVATED [None]
  - GASTROINTESTINAL DISORDER [None]
  - HAEMORRHAGE [None]
  - IMPULSIVE BEHAVIOUR [None]
  - IRRITABILITY [None]
  - NUCLEAR MAGNETIC RESONANCE IMAGING ABNORMAL [None]
